FAERS Safety Report 17914767 (Version 1)
Quarter: 2020Q2

REPORT INFORMATION
  Report Type: Report from Study
  Country: None (occurrence: AR)
  Receive Date: 20200619
  Receipt Date: 20200619
  Transmission Date: 20200714
  Serious: Yes (Other)
  Sender: FDA-Public Use
  Company Number: AR-ABBVIE-20K-007-3451956-00

PATIENT
  Age: 63 Year
  Sex: Male

DRUGS (1)
  1. HUMIRA [Suspect]
     Active Substance: ADALIMUMAB
     Indication: PSORIATIC ARTHROPATHY
     Route: 058
     Dates: start: 20150101

REACTIONS (8)
  - Blood pressure increased [Unknown]
  - Stress [Unknown]
  - Psoriatic arthropathy [Not Recovered/Not Resolved]
  - Renal injury [Unknown]
  - Pain [Unknown]
  - Dizziness [Unknown]
  - Peripheral venous disease [Unknown]
  - Mobility decreased [Unknown]

NARRATIVE: CASE EVENT DATE: 20200612
